FAERS Safety Report 8112072-1 (Version None)
Quarter: 2012Q1

REPORT INFORMATION
  Report Type: 
  Country: None (occurrence: None)
  Receive Date: 20120203
  Receipt Date: 20120201
  Transmission Date: 20120608
  Serious: Yes (Other)
  Sender: FDA-Public Use
  Company Number: JP-PFIZER INC-2012007618

PATIENT
  Age: 83 Year
  Sex: Female
  Weight: 45 kg

DRUGS (7)
  1. ZOLOFT [Suspect]
     Indication: DEPRESSION
     Dosage: 25 MG, 1X/DAY
     Route: 048
     Dates: start: 20111116, end: 20111128
  2. LASIX [Concomitant]
     Indication: CARDIAC FAILURE
     Dosage: 20 MG, DAILY
     Route: 048
     Dates: start: 20111103, end: 20111206
  3. DISOPYRAMIDE PHOSPHATE [Concomitant]
     Indication: ARRHYTHMIA
     Dosage: 50 MG, DAILY
     Route: 048
     Dates: start: 20111110, end: 20111206
  4. VERAPAMIL HCL [Concomitant]
     Indication: ARRHYTHMIA
     Dosage: 120 MG, DAILY
     Route: 048
     Dates: start: 20111031, end: 20111114
  5. TRAZODONE HYDROCHLORIDE [Suspect]
     Indication: POOR QUALITY SLEEP
     Dosage: 25 MG, DAILY
     Route: 048
     Dates: start: 20111110
  6. ZOLOFT [Suspect]
     Indication: DECREASED APPETITE
  7. ALBUMIN TANNATE [Concomitant]
     Indication: DIARRHOEA
     Dosage: 1 G, 3X/DAY
     Route: 048
     Dates: start: 20111120, end: 20111206

REACTIONS (3)
  - DELIRIUM [None]
  - MYOCLONUS [None]
  - DISORIENTATION [None]
